FAERS Safety Report 22125896 (Version 2)
Quarter: 2023Q2

REPORT INFORMATION
  Report Type: Spontaneous
  Country: CA (occurrence: CA)
  Receive Date: 20230322
  Receipt Date: 20230601
  Transmission Date: 20230721
  Serious: Yes (Death, Life-Threatening, Hospitalization, Disabling, Other)
  Sender: FDA-Public Use
  Company Number: CA-ANIPHARMA-2023-CA-000612

PATIENT
  Age: 43 Year
  Sex: Female
  Weight: 96 kg

DRUGS (82)
  1. CANDESARTAN CILEXETIL [Suspect]
     Active Substance: CANDESARTAN CILEXETIL
     Indication: Migraine
     Route: 048
  2. ALENDRONIC ACID [Suspect]
     Active Substance: ALENDRONIC ACID
     Route: 065
  3. DICLOFENAC SODIUM [Suspect]
     Active Substance: DICLOFENAC SODIUM
     Route: 065
  4. PREDNISONE [Suspect]
     Active Substance: PREDNISONE
     Dosage: 40 MG UNK / 1 MG UNK / 5 MG UNK
     Route: 065
  5. APREMILAST [Suspect]
     Active Substance: APREMILAST
     Dosage: 3 MG BID
     Route: 065
  6. ARAVA [Suspect]
     Active Substance: LEFLUNOMIDE
     Dosage: UNK / 20 MG UNK
     Route: 048
  7. ATOMOXETINE [Suspect]
     Active Substance: ATOMOXETINE
     Dosage: 1 DF UNK
     Route: 065
  8. BERINERT [Suspect]
     Active Substance: HUMAN C1-ESTERASE INHIBITOR
     Route: 065
  9. BOTULINUM TOXIN TYPE A [Suspect]
     Active Substance: BOTULINUM TOXIN TYPE A
     Route: 065
  10. BUTRANS [Suspect]
     Active Substance: BUPRENORPHINE
     Route: 065
  11. CALCIUM ASCORBATE [Suspect]
     Active Substance: CALCIUM ASCORBATE
     Route: 065
  12. RAMIPRIL [Suspect]
     Active Substance: RAMIPRIL
     Route: 042
  13. CELEBREX [Suspect]
     Active Substance: CELECOXIB
     Dosage: 1 DF DAILY / 2 DF DAILY
     Route: 065
  14. CERTOLIZUMAB PEGOL [Suspect]
     Active Substance: CERTOLIZUMAB PEGOL
     Route: 065
  15. CETIRIZINE [Suspect]
     Active Substance: CETIRIZINE HYDROCHLORIDE
     Dosage: 25 MG UNK / 10 MG UNK / 10 MG UNK
     Route: 048
  16. CETIRIZINE HYDROCHLORIDE [Suspect]
     Active Substance: CETIRIZINE HYDROCHLORIDE
     Dosage: UNK / 25 MG UNK / 25 MG UNK / 10 MG UNK / 10 MG UNK / UNK / 10 MG UNK / 25 MG UNK / 25 MG UNK / 25 M
     Route: 065
  17. CHLORHEXIDINE GLUCONATE [Suspect]
     Active Substance: CHLORHEXIDINE GLUCONATE
     Route: 061
  18. CHOLECALCIFEROL [Suspect]
     Active Substance: CHOLECALCIFEROL
     Route: 065
  19. CIMZIA [Suspect]
     Active Substance: CERTOLIZUMAB PEGOL
     Dosage: UNK / 400 MG UNK / UNK
     Route: 065
  20. CORTISONE [Suspect]
     Active Substance: CORTISONE
     Route: 058
  21. CORTISONE ACETATE [Suspect]
     Active Substance: CORTISONE ACETATE
     Dosage: 25 MG UNK / UNK
     Route: 061
  22. COSENTYX [Suspect]
     Active Substance: SECUKINUMAB
     Route: 065
  23. ACETAMINOPHEN [Concomitant]
     Active Substance: ACETAMINOPHEN
     Dosage: 20 MG UNK
     Route: 065
  24. DESOXIMETASONE [Suspect]
     Active Substance: DESOXIMETASONE
     Dosage: UNK / 25 MG UNK / UNK / 25 MG UNK
     Route: 065
  25. ERGOCALCIFEROL [Suspect]
     Active Substance: ERGOCALCIFEROL
     Dosage: 1 DF UNK
     Route: 065
  26. DICLOFENAC DIETHYLAMINE [Suspect]
     Active Substance: DICLOFENAC DIETHYLAMINE
     Route: 065
  27. DICLOFENAC SODIUM [Suspect]
     Active Substance: DICLOFENAC SODIUM
     Route: 058
  28. DOMPERIDONE MALEATE [Suspect]
     Active Substance: DOMPERIDONE MALEATE
     Route: 065
  29. ENBREL [Suspect]
     Active Substance: ETANERCEPT
     Route: 058
  30. ERELZI [Suspect]
     Active Substance: ETANERCEPT-SZZS
     Dosage: 50 MG WEEK
     Route: 058
  31. ERENUMAB [Suspect]
     Active Substance: ERENUMAB
     Route: 065
  32. FLUMETHASONE [Suspect]
     Active Substance: FLUMETHASONE
     Route: 065
  33. FLUMETHASONE PIVALATE [Suspect]
     Active Substance: FLUMETHASONE PIVALATE
     Route: 058
  34. ACETAMINOPHEN [Suspect]
     Active Substance: ACETAMINOPHEN
     Route: 065
  35. FOLIC ACID [Suspect]
     Active Substance: FOLIC ACID
     Dosage: 25 MG UNK / 1 MG UNK / .5 MG UNK / 500 MG UNK
     Route: 048
  36. FOSAMAX [Suspect]
     Active Substance: ALENDRONATE SODIUM
     Route: 048
  37. GOLD [Suspect]
     Active Substance: GOLD
     Route: 065
  38. GOLD SODIUM THIOMALATE [Suspect]
     Active Substance: GOLD SODIUM THIOMALATE
     Route: 065
  39. GOLIMUMAB [Suspect]
     Active Substance: GOLIMUMAB
     Route: 058
  40. HUMIRA [Suspect]
     Active Substance: ADALIMUMAB
     Dosage: UNK / UNK / 40 MG UNK
     Route: 058
  41. HYDROCORTISONE BUTYRATE [Suspect]
     Active Substance: HYDROCORTISONE BUTYRATE
     Route: 065
  42. HYDROXYCHLOROQUINE [Suspect]
     Active Substance: HYDROXYCHLOROQUINE
     Dosage: DOSE TEXT: 1 EVERY 1 DAYS / 40 MG UNK / DOSE TEXT: 1 EVERY 1 DAYS / 400 MG DAILY / UNK
     Route: 048
  43. HYDROXYCHLOROQUINE SULFATE [Suspect]
     Active Substance: HYDROXYCHLOROQUINE SULFATE
     Dosage: UNK / 40 MG DAILY
     Route: 048
  44. INFLIXIMAB [Suspect]
     Active Substance: INFLIXIMAB
     Route: 065
  45. ACTEMRA [Suspect]
     Active Substance: TOCILIZUMAB
     Dosage: UNK / 20 MG UNK / UNK / 2912 MG UNK / 3011.2 MG UNK / UNK / 728 MG UNK / 752.8 MG UNK
     Route: 058
  46. KEVZARA [Suspect]
     Active Substance: SARILUMAB
     Route: 065
  47. LAMICTAL [Suspect]
     Active Substance: LAMOTRIGINE
     Dosage: 25 MG UNK / DOSE TEXT: 25 MG 1 EVERY 2 DAYS / DOSE TEXT: 50.0 MG 1 EVERY 2 DAYS / UNK
     Route: 048
  48. LEFLUNOMIDE [Suspect]
     Active Substance: LEFLUNOMIDE
     Dosage: UNK / UNK / 20 MG UNK / 10 MG DAILY / 20 MG DAILY
     Route: 048
  49. MAGNESIUM CITRATE [Suspect]
     Active Substance: MAGNESIUM CITRATE
     Route: 065
  50. METHOTREXATE [Suspect]
     Active Substance: METHOTREXATE
     Dosage: 20 MG DAILY / 25 MG WEEK / 25 MG WEEK
     Route: 048
  51. METHYLPREDNISOLONE SODIUM SUCCINATE [Suspect]
     Active Substance: METHYLPREDNISOLONE SODIUM SUCCINATE
     Route: 065
  52. MYRBETRIQ [Suspect]
     Active Substance: MIRABEGRON
     Dosage: 1 DF DAILY / 1 DF DAILY
     Route: 048
  53. NAPROXEN [Suspect]
     Active Substance: NAPROXEN
     Route: 065
  54. NAPROXEN SODIUM [Suspect]
     Active Substance: NAPROXEN SODIUM
     Dosage: 500 MG UNK
     Route: 065
  55. NUCALA [Suspect]
     Active Substance: MEPOLIZUMAB
     Route: 065
  56. ADALIMUMAB [Suspect]
     Active Substance: ADALIMUMAB
     Dosage: 40 MG UNK / 40 MG UNK
     Route: 058
  57. ORENCIA [Suspect]
     Active Substance: ABATACEPT
     Route: 042
  58. OXYCODONE [Suspect]
     Active Substance: OXYCODONE
     Route: 065
  59. OXYCODONE TEREPHTHALATE [Suspect]
     Active Substance: OXYCODONE TEREPHTHALATE
     Route: 065
  60. PHENYLEPHRINE HYDROCHLORIDE [Suspect]
     Active Substance: PHENYLEPHRINE HYDROCHLORIDE
     Dosage: 10 MG UNK
     Route: 065
  61. PHTHALYLSULFATHIAZOLE [Suspect]
     Active Substance: PHTHALYLSULFATHIAZOLE
     Dosage: 1000 MG UNK / 500 MG UNK
     Route: 048
  62. PREDNISONE [Suspect]
     Active Substance: PREDNISONE
     Dosage: UNK / 1 MG UNK / 5 MG UNK
     Route: 048
  63. PSEUDOEPHEDRINE HYDROCHLORIDE [Suspect]
     Active Substance: PSEUDOEPHEDRINE HYDROCHLORIDE
     Dosage: 25 MG UNK / 10 MG UNK / 1 MG UNK
     Route: 065
  64. RANITIDINE [Suspect]
     Active Substance: RANITIDINE
     Route: 065
  65. CETIRIZINE HYDROCHLORIDE\PSEUDOEPHEDRINE HYDROCHLORIDE [Suspect]
     Active Substance: CETIRIZINE HYDROCHLORIDE\PSEUDOEPHEDRINE HYDROCHLORIDE
     Dosage: 10 MG UNK / UNK / UNK / 10 MG UNK / 25 MG UNK
     Route: 065
  66. REMICADE [Suspect]
     Active Substance: INFLIXIMAB
     Route: 042
  67. AIMOVIG [Suspect]
     Active Substance: ERENUMAB-AOOE
     Route: 065
  68. RITUXIMAB [Suspect]
     Active Substance: RITUXIMAB
     Dosage: UNK / 365 MG UNK / UNK / UNK
     Route: 042
  69. DIETARY SUPPLEMENT [Suspect]
     Active Substance: DIETARY SUPPLEMENT
  70. SIMPONI [Suspect]
     Active Substance: GOLIMUMAB
     Route: 058
  71. GOLD SODIUM THIOMALATE [Suspect]
     Active Substance: GOLD SODIUM THIOMALATE
     Route: 065
  72. STELARA [Suspect]
     Active Substance: USTEKINUMAB
     Route: 058
  73. SULFASALAZINE [Suspect]
     Active Substance: SULFASALAZINE
     Dosage: 500 MG UNK / 1000 MG BID / 300 MG DAILY / 100 MG UNK / 2 G DAILY / 1 DF BID / 1 G BID / 1 G DAILY /
     Route: 048
  74. TOCILIZUMAB [Suspect]
     Active Substance: TOCILIZUMAB
     Route: 042
  75. TOFACITINIB [Suspect]
     Active Substance: TOFACITINIB
     Dosage: 5 MG BID
     Route: 065
  76. TOPIRAMATE [Suspect]
     Active Substance: TOPIRAMATE
     Dosage: DOSE TEXT: 1 EVERY 2 DAYS, 25 MG / 3 MG DAILY / 25 MG DAILY
     Route: 065
  77. TRAMADOL HYDROCHLORIDE [Suspect]
     Active Substance: TRAMADOL HYDROCHLORIDE
     Route: 065
  78. ALENDRONATE SODIUM [Suspect]
     Active Substance: ALENDRONATE SODIUM
     Route: 048
  79. USTEKINUMAB [Suspect]
     Active Substance: USTEKINUMAB
     Dosage: UNK / 40 MG UNK
     Route: 058
  80. VITAMIN C [Suspect]
     Active Substance: ASCORBIC ACID
     Route: 065
  81. XELJANZ [Suspect]
     Active Substance: TOFACITINIB CITRATE
     Dosage: 5 MG UNK
     Route: 065
  82. ALENDRONATE SODIUM\CHOLECALCIFEROL [Suspect]
     Active Substance: ALENDRONATE SODIUM\CHOLECALCIFEROL
     Route: 065

REACTIONS (80)
  - Abdominal discomfort [Fatal]
  - Blister [Fatal]
  - Blood cholesterol increased [Fatal]
  - Breast cancer stage III [Fatal]
  - Bursitis [Fatal]
  - C-reactive protein increased [Fatal]
  - Confusional state [Fatal]
  - Depression [Fatal]
  - Diarrhoea [Fatal]
  - Dizziness [Fatal]
  - Drug ineffective for unapproved indication [Fatal]
  - Abdominal pain upper [Fatal]
  - Drug intolerance [Fatal]
  - Dry mouth [Fatal]
  - Duodenal ulcer perforation [Fatal]
  - Epilepsy [Fatal]
  - Facet joint syndrome [Fatal]
  - Fibromyalgia [Fatal]
  - Folliculitis [Fatal]
  - Gastrooesophageal reflux disease [Fatal]
  - General physical health deterioration [Fatal]
  - Glossodynia [Fatal]
  - Alopecia [Fatal]
  - Hand deformity [Fatal]
  - Helicobacter infection [Fatal]
  - Hepatic enzyme increased [Fatal]
  - Hypercholesterolaemia [Fatal]
  - Hypertension [Fatal]
  - Hypoaesthesia [Fatal]
  - Impaired healing [Fatal]
  - Inflammation [Fatal]
  - Infusion related reaction [Fatal]
  - Irritable bowel syndrome [Fatal]
  - Anti-cyclic citrullinated peptide antibody positive [Fatal]
  - Joint range of motion decreased [Fatal]
  - Joint swelling [Fatal]
  - Lip dry [Fatal]
  - Live birth [Fatal]
  - Liver injury [Fatal]
  - Lower respiratory tract infection [Fatal]
  - Lung disorder [Fatal]
  - Maternal exposure during pregnancy [Fatal]
  - Memory impairment [Fatal]
  - Arthralgia [Fatal]
  - Wound infection [Fatal]
  - Muscle injury [Fatal]
  - Musculoskeletal pain [Fatal]
  - Nail disorder [Fatal]
  - Muscle spasms [Fatal]
  - Nasopharyngitis [Fatal]
  - Night sweats [Fatal]
  - Obesity [Fatal]
  - Off label use [Fatal]
  - Arthropathy [Fatal]
  - Osteoarthritis [Fatal]
  - Pain [Fatal]
  - Paraesthesia [Fatal]
  - Pemphigus [Fatal]
  - Pericarditis [Fatal]
  - Peripheral swelling [Fatal]
  - Peripheral venous disease [Fatal]
  - Product quality issue [Fatal]
  - Product use in unapproved indication [Fatal]
  - Psoriatic arthropathy [Fatal]
  - Intentional product use issue [Fatal]
  - Rash [Fatal]
  - Rheumatoid arthritis [Fatal]
  - Stomatitis [Fatal]
  - Swelling [Fatal]
  - Synovitis [Fatal]
  - Systemic lupus erythematosus [Fatal]
  - Type 2 diabetes mellitus [Fatal]
  - Urticaria [Fatal]
  - Vomiting [Fatal]
  - Weight increased [Fatal]
  - Asthenia [Fatal]
  - Wheezing [Fatal]
  - Wound [Fatal]
  - Taste disorder [Fatal]
  - Blepharospasm [Fatal]
